FAERS Safety Report 7340065-0 (Version None)
Quarter: 2011Q1

REPORT INFORMATION
  Report Type: 
  Country: None (occurrence: None)
  Receive Date: 20110309
  Receipt Date: 20110302
  Transmission Date: 20110831
  Serious: Yes (Life-Threatening)
  Sender: FDA-Public Use
  Company Number: PHHY2011US17688

PATIENT
  Sex: Female

DRUGS (1)
  1. FEMARA [Suspect]
     Indication: NEOPLASM MALIGNANT
     Dosage: 2.5 MG, QD
     Route: 048

REACTIONS (2)
  - NEOPLASM RECURRENCE [None]
  - DRUG INEFFECTIVE [None]
